FAERS Safety Report 7331519-1 (Version None)
Quarter: 2011Q1

REPORT INFORMATION
  Report Type: 
  Country: None (occurrence: None)
  Receive Date: 20110228
  Receipt Date: 20110228
  Transmission Date: 20110831
  Serious: No
  Sender: FDA-Public Use
  Company Number: None

PATIENT
  Sex: Male
  Weight: 88.6 kg

DRUGS (1)
  1. CIPROFLOXACIN [Suspect]
     Indication: PROSTATIC DISORDER
     Dosage: 250 MG CIPROFLOXACIN ONCE DAY
     Dates: start: 20110202, end: 20110208

REACTIONS (6)
  - HYPOAESTHESIA [None]
  - IRRITABILITY [None]
  - PAIN [None]
  - RASH [None]
  - FATIGUE [None]
  - OEDEMA PERIPHERAL [None]
